FAERS Safety Report 5739755-2 (Version None)
Quarter: 2008Q2

REPORT INFORMATION
  Report Type: 
  Country: None (occurrence: None)
  Receive Date: 20080512
  Receipt Date: 20080512
  Transmission Date: 20081010
  Serious: Yes (Death)
  Sender: FDA-Public Use
  Company Number: None

PATIENT
  Age: 66 Year
  Sex: Male
  Weight: 90.7194 kg

DRUGS (9)
  1. OXYCODONE 7.5 TAB [Suspect]
     Indication: OEDEMA PERIPHERAL
     Dates: start: 20070118, end: 20070118
  2. OXYCODONE 7.5 TAB [Suspect]
     Indication: PAIN IN EXTREMITY
     Dates: start: 20070118, end: 20070118
  3. SEROQUEL [Concomitant]
  4. PRANDIN [Concomitant]
  5. INSULIN [Concomitant]
  6. SONATA [Concomitant]
  7. GLIPIZIDE [Concomitant]
  8. NEXIUM [Concomitant]
  9. PRILOSEC [Concomitant]

REACTIONS (4)
  - AZOTAEMIA [None]
  - DRUG LEVEL ABOVE THERAPEUTIC [None]
  - OEDEMA PERIPHERAL [None]
  - SUDDEN DEATH [None]
